FAERS Safety Report 24274119 (Version 2)
Quarter: 2024Q3

REPORT INFORMATION
  Report Type: Spontaneous
  Country: ES (occurrence: ES)
  Receive Date: 20240902
  Receipt Date: 20240912
  Transmission Date: 20241016
  Serious: Yes (Other)
  Sender: TEVA
  Company Number: ES-TEVA-VS-3237620

PATIENT
  Age: 50 Year
  Sex: Female

DRUGS (1)
  1. COPAXONE [Suspect]
     Active Substance: GLATIRAMER ACETATE
     Indication: Multiple sclerosis
     Dosage: TIME INTERVAL: 0.33333333 WEEKS: DOSAGE: 40 MG/ML
     Route: 065
     Dates: start: 20180603

REACTIONS (14)
  - Choking [Recovering/Resolving]
  - Injection site pain [Unknown]
  - Injection site erythema [Unknown]
  - Injection site bruising [Recovering/Resolving]
  - Fear of death [Recovering/Resolving]
  - Injection site induration [Unknown]
  - Pain in extremity [Recovering/Resolving]
  - Hyperhidrosis [Recovering/Resolving]
  - Injection site haemorrhage [Recovering/Resolving]
  - Injection site nodule [Recovering/Resolving]
  - Injection site warmth [Recovering/Resolving]
  - Injection site paraesthesia [Recovering/Resolving]
  - Scab [Unknown]
  - Injection site swelling [Unknown]

NARRATIVE: CASE EVENT DATE: 20240101
